FAERS Safety Report 8953950 (Version 1)
Quarter: 2012Q4

REPORT INFORMATION
  Report Type: 
  Country: CA (occurrence: CA)
  Receive Date: 20121206
  Receipt Date: 20121206
  Transmission Date: 20130627
  Serious: Yes (Death)
  Sender: FDA-Public Use
  Company Number: CHPA2012CA023982

PATIENT
  Sex: Female

DRUGS (1)
  1. NEOCITRAN NIGHTTIME TOTAL SYMPTOM RELIEF [Suspect]
     Dosage: Unk, Unk
     Route: 048

REACTIONS (1)
  - Death [Fatal]
